FAERS Safety Report 13758944 (Version 1)
Quarter: 2017Q3

REPORT INFORMATION
  Report Type: Spontaneous
  Country: US (occurrence: US)
  Receive Date: 20170717
  Receipt Date: 20170717
  Transmission Date: 20171127
  Serious: Yes (Hospitalization, Other)
  Sender: FDA-Public Use
  Company Number: None

PATIENT
  Age: 34 Year
  Sex: Male
  Weight: 92.25 kg

DRUGS (1)
  1. CLOZARIL [Suspect]
     Active Substance: CLOZAPINE
     Indication: SCHIZOPHRENIA
     Dates: start: 20170623, end: 20170711

REACTIONS (5)
  - Diarrhoea [None]
  - Vomiting [None]
  - Nausea [None]
  - Renal failure [None]
  - Respiratory failure [None]

NARRATIVE: CASE EVENT DATE: 20170709
